FAERS Safety Report 24791289 (Version 1)
Quarter: 2024Q4

REPORT INFORMATION
  Report Type: Spontaneous
  Country: LT (occurrence: LT)
  Receive Date: 20241230
  Receipt Date: 20241230
  Transmission Date: 20250115
  Serious: Yes (Hospitalization, Other)
  Sender: JOHNSON AND JOHNSON
  Company Number: LT-RECORDATI-2024009608

PATIENT
  Age: 82 Year
  Sex: Male

DRUGS (2)
  1. APALUTAMIDE [Suspect]
     Active Substance: APALUTAMIDE
     Indication: Product used for unknown indication
     Dosage: UNK
     Route: 065
  2. ELIGARD [Suspect]
     Active Substance: LEUPROLIDE ACETATE
     Indication: Prostate cancer
     Dosage: ONE TIME
     Dates: start: 20241129, end: 20241130

REACTIONS (6)
  - Type III immune complex mediated reaction [Recovering/Resolving]
  - Type IV hypersensitivity reaction [Recovering/Resolving]
  - Blood immunoglobulin E increased [Recovering/Resolving]
  - Incorrect route of product administration [Recovered/Resolved]
  - Swelling face [Unknown]
  - Peripheral swelling [Unknown]

NARRATIVE: CASE EVENT DATE: 20241129
